FAERS Safety Report 6574757-8 (Version None)
Quarter: 2010Q1

REPORT INFORMATION
  Report Type: 
  Country: None (occurrence: None)
  Receive Date: 20100202
  Receipt Date: 20100121
  Transmission Date: 20100710
  Serious: No
  Sender: FDA-Public Use
  Company Number: 20097873

PATIENT
  Sex: Male

DRUGS (9)
  1. LIORESAL [Suspect]
     Indication: MUSCLE SPASTICITY
     Dosage: 100-249.04 MCG, DAILY, INTRATHECAL
     Route: 037
  2. ORAL BACLOFEN [Concomitant]
  3. VALIUM [Concomitant]
  4. NASACORT [Concomitant]
  5. PERCOCET [Concomitant]
  6. ROBITUSSIN-AC [Concomitant]
  7. AVELOX [Concomitant]
  8. ZYRTEC [Concomitant]
  9. VICODIN [Concomitant]

REACTIONS (10)
  - ATHETOSIS [None]
  - GASTROENTERITIS VIRAL [None]
  - HYPOTONIA [None]
  - INSOMNIA [None]
  - IRRITABILITY [None]
  - MEDICAL DEVICE COMPLICATION [None]
  - MUSCLE RIGIDITY [None]
  - MUSCLE SPASTICITY [None]
  - PAIN [None]
  - PRURITUS [None]
